FAERS Safety Report 9306187 (Version 3)
Quarter: 2013Q4

REPORT INFORMATION
  Report Type: Spontaneous
  Country: US (occurrence: None)
  Receive Date: 20130516
  Receipt Date: 20131212
  Transmission Date: 20140711
  Serious: Yes (Hospitalization)
  Sender: FDA-Public Use
  Company Number: 003-109

PATIENT
  Age: 40 Year
  Sex: Female

DRUGS (1)
  1. CROFAB [Suspect]
     Indication: SNAKE BITE
     Dosage: 26 VIALS

REACTIONS (3)
  - Platelet count decreased [None]
  - Menorrhagia [None]
  - Haematocrit decreased [None]
